FAERS Safety Report 6209876-9 (Version None)
Quarter: 2009Q2

REPORT INFORMATION
  Report Type: 
  Country: None (occurrence: None)
  Receive Date: 20090528
  Receipt Date: 20090528
  Transmission Date: 20091009
  Serious: Yes (Life-Threatening, Hospitalization)
  Sender: FDA-Public Use
  Company Number: None

PATIENT
  Age: 47 Year
  Sex: Female
  Weight: 73.6 kg

DRUGS (2)
  1. QUETIAPINE FUMARATE [Suspect]
     Indication: ANXIETY
     Dosage: 150 MG EVERY DAY
     Dates: start: 20061128, end: 20090424
  2. PROMETHAZINE [Suspect]
     Indication: NAUSEA
     Dosage: 25 MG ONCE IV
     Route: 042
     Dates: start: 20090429, end: 20090429

REACTIONS (3)
  - ACCELERATED IDIOVENTRICULAR RHYTHM [None]
  - ELECTROCARDIOGRAM QT PROLONGED [None]
  - VENTRICULAR TACHYCARDIA [None]
